FAERS Safety Report 4687668-X (Version None)
Quarter: 2005Q2

REPORT INFORMATION
  Report Type: 
  Country: None (occurrence: None)
  Receive Date: 20050608
  Receipt Date: 20050608
  Transmission Date: 20051028
  Serious: Yes (Hospitalization)
  Sender: FDA-Public Use
  Company Number: None

PATIENT
  Age: 60 Year
  Sex: Male
  Weight: 99 kg

DRUGS (6)
  1. 5 FU [Suspect]
     Indication: COLON CANCER METASTATIC
     Dosage: 400/400 IV BOLUS
     Route: 042
     Dates: start: 20050401
  2. 5-FU (1200MG/M2 OVER 45 HOUR CONTINUOUS INFUSION ) EVERY OTHER WEEK [Suspect]
     Indication: COLON CANCER METASTATIC
     Dosage: 1200 CI IV
     Route: 042
     Dates: start: 20050401, end: 20050403
  3. LEUCOVORIN (400MG/M2) EVERY OTHER WEEK [Suspect]
     Indication: COLON CANCER METASTATIC
     Dosage: 400/400 IV BOLUS
     Route: 048
     Dates: start: 20050401
  4. ERLOTINIB [Suspect]
     Indication: COLON CANCER METASTATIC
     Dosage: 150 MG QD ORAL
     Route: 048
     Dates: start: 20050401, end: 20050407
  5. OXALIPLATIN (85 MG/M2) EVERY OTHER WEEK [Suspect]
     Indication: COLON CANCER METASTATIC
     Dosage: 85 IV
     Route: 042
     Dates: start: 20050401
  6. BEVACIZUMAB (5MG/KG) [Suspect]
     Indication: COLON CANCER METASTATIC
     Dosage: 5MG/KG IV
     Route: 042
     Dates: start: 20050401

REACTIONS (7)
  - ABDOMINAL PAIN [None]
  - ABDOMINAL PAIN LOWER [None]
  - ANAL FISSURE [None]
  - CONSTIPATION [None]
  - INTESTINAL OBSTRUCTION [None]
  - PROCTALGIA [None]
  - RECTAL CRAMPS [None]
